FAERS Safety Report 8389767-8 (Version None)
Quarter: 2012Q2

REPORT INFORMATION
  Report Type: 
  Country: None (occurrence: None)
  Receive Date: 20120524
  Receipt Date: 20120524
  Transmission Date: 20120825
  Serious: Yes (Hospitalization)
  Sender: FDA-Public Use
  Company Number: None

PATIENT
  Age: 62 Year
  Sex: Male
  Weight: 79.8331 kg

DRUGS (25)
  1. VISCOUS LIDOCANE [Concomitant]
  2. HALDOL [Concomitant]
  3. MAGIC MOUTHWASH [Concomitant]
  4. MORPHINE [Concomitant]
  5. IRINOTECAN HCL [Suspect]
     Indication: PANCREATIC CARCINOMA
     Dosage: 300MG
     Dates: start: 20120213, end: 20120227
  6. IMODIUM [Concomitant]
  7. OXYCODONE HYDROCHLORIDE [Concomitant]
  8. OXYCONTIN [Concomitant]
  9. ZANTAC [Concomitant]
  10. TRIPLE MIX [Concomitant]
  11. COMPAZINO (PROCHLORPERAZINE MALEATE) [Concomitant]
  12. LORAZEPAM [Concomitant]
  13. RITALIN TAB [Concomitant]
  14. GELCLAIR [Concomitant]
  15. VALTREX [Concomitant]
  16. ZOFRAN [Concomitant]
  17. VANCOMYCIN [Concomitant]
  18. CEFEPIME [Concomitant]
  19. DILAUDID [Concomitant]
  20. DECADRON [Concomitant]
  21. LEVOLEUCOVORIN [Suspect]
     Indication: PANCREATIC CARCINOMA
     Dosage: 400MG
     Dates: start: 20120213, end: 20120227
  22. EMEND [Concomitant]
  23. POLYETHYLENE GLYCOL [Concomitant]
  24. SENOKOT [Concomitant]
  25. ZYPREXA [Concomitant]

REACTIONS (13)
  - VOMITING [None]
  - CULTURE URINE POSITIVE [None]
  - INFECTION [None]
  - NAUSEA [None]
  - LETHARGY [None]
  - MOUTH ULCERATION [None]
  - FEBRILE NEUTROPENIA [None]
  - THROMBOCYTOPENIA [None]
  - DEHYDRATION [None]
  - ODYNOPHAGIA [None]
  - STOMATITIS [None]
  - LEUKOPENIA [None]
  - ENTEROCOCCUS TEST POSITIVE [None]
